FAERS Safety Report 9555721 (Version 1)
Quarter: 2013Q3

REPORT INFORMATION
  Report Type: Spontaneous
  Country: US (occurrence: None)
  Receive Date: 20130830
  Receipt Date: 20130830
  Transmission Date: 20140515
  Serious: Yes (Other)
  Sender: FDA-Public Use
  Company Number: SP06622

PATIENT
  Age: 62 Year
  Sex: Female
  Weight: 97.52 kg

DRUGS (5)
  1. MOVIPREP (SOLUTION) [Suspect]
     Indication: BOWEL PREPARATION
     Route: 048
     Dates: start: 20130428, end: 20130428
  2. LISINOPRIL [Concomitant]
  3. SPIRIVA [Concomitant]
  4. ADVAIR [Concomitant]
  5. PROVENTIL [Concomitant]

REACTIONS (3)
  - Vomiting [None]
  - Tongue oedema [None]
  - Swelling face [None]
